FAERS Safety Report 24815115 (Version 1)
Quarter: 2025Q1

REPORT INFORMATION
  Report Type: Spontaneous
  Country: ES (occurrence: ES)
  Receive Date: 20250107
  Receipt Date: 20250107
  Transmission Date: 20250408
  Serious: Yes (Hospitalization)
  Sender: CHEPLAPHARM
  Company Number: None

PATIENT
  Age: 72 Year
  Sex: Female

DRUGS (15)
  1. OLANZAPINE [Suspect]
     Active Substance: OLANZAPINE
     Indication: Bipolar disorder
     Dosage: 0-0-2. PACKAGES COATED?DAILY DOSE: 5 MILLIGRAM
     Route: 048
     Dates: start: 20200113, end: 20240307
  2. OLANZAPINE [Suspect]
     Active Substance: OLANZAPINE
     Indication: Bipolar disorder
     Dosage: DAILY DOSE: 2.5 MILLIGRAM
     Route: 048
     Dates: start: 20240308, end: 20240430
  3. LITHIUM CARBONATE [Suspect]
     Active Substance: LITHIUM CARBONATE
     Indication: Bipolar disorder
     Dosage: 0,5-0-1. MODIFIED RELEASE MODIFIED RELEASE TABLETS, 100 ?TABLETS?DAILY DOSE: 600 MILLIGRAM
     Route: 048
     Dates: start: 20181017, end: 20240307
  4. LITHIUM CARBONATE [Suspect]
     Active Substance: LITHIUM CARBONATE
     Indication: Toxicity to various agents
     Dosage: 0,5-0-1. MODIFIED RELEASE MODIFIED RELEASE TABLETS, 100 ?TABLETS?DAILY DOSE: 600 MILLIGRAM
     Route: 048
     Dates: start: 20181017, end: 20240307
  5. LITHIUM CARBONATE [Suspect]
     Active Substance: LITHIUM CARBONATE
     Indication: Bipolar disorder
     Dosage: PLENUR HALF A TABLET AT BREAKFAST AND HALF A TABLET AT NIGHT. REDUCE THE DOSE TO 0.5-0-0.5
     Route: 048
     Dates: start: 20240308, end: 20240430
  6. LITHIUM CARBONATE [Suspect]
     Active Substance: LITHIUM CARBONATE
     Indication: Toxicity to various agents
     Dosage: PLENUR HALF A TABLET AT BREAKFAST AND HALF A TABLET AT NIGHT. REDUCE THE DOSE TO 0.5-0-0.5
     Route: 048
     Dates: start: 20240308, end: 20240430
  7. LITHIUM CARBONATE [Suspect]
     Active Substance: LITHIUM CARBONATE
     Indication: Bipolar disorder
     Dosage: DAILY DOSE: 200 MILLIGRAM
     Route: 048
     Dates: start: 20240501, end: 20240505
  8. LITHIUM CARBONATE [Suspect]
     Active Substance: LITHIUM CARBONATE
     Indication: Toxicity to various agents
     Dosage: DAILY DOSE: 200 MILLIGRAM
     Route: 048
     Dates: start: 20240501, end: 20240505
  9. LORMETAZEPAM [Suspect]
     Active Substance: LORMETAZEPAM
     Indication: Anxiety
     Dosage: 0-0-1,5. NOCTAMID 2MG, 1/2 OR 1 RESCUE?DAILY DOSE: 1.5 DOSAGE FORM
     Route: 048
     Dates: start: 20211129, end: 20240320
  10. LORAZEPAM [Concomitant]
     Active Substance: LORAZEPAM
     Indication: Anxiety
     Dosage: 1-0-0. TABLETS, 25 TABLETS?DAILY DOSE: 1 DOSAGE FORM
     Route: 048
     Dates: start: 20180319, end: 20240320
  11. BUPROPION HYDROCHLORIDE [Concomitant]
     Active Substance: BUPROPION HYDROCHLORIDE
     Dosage: ELONTRIL 150MG 1-0-0 ?DAILY DOSE: 150 MILLIGRAM
     Dates: start: 2024
  12. CALCIFEDIOL [Concomitant]
     Active Substance: CALCIFEDIOL
     Dosage: HYDROFEROL MONTHLY FROM OCTOBER
     Dates: start: 202410
  13. ACETAMINOPHEN [Concomitant]
     Active Substance: ACETAMINOPHEN
  14. Nolotil [Concomitant]
  15. QUETIAPINE [Concomitant]
     Active Substance: QUETIAPINE
     Dosage: DAILY DOSE: 1 DOSAGE FORM

REACTIONS (7)
  - Parkinsonism [Recovered/Resolved]
  - Injury [Unknown]
  - Craniofacial fracture [Unknown]
  - Fall [Unknown]
  - Cerebral small vessel ischaemic disease [Unknown]
  - Central nervous system lesion [Unknown]
  - Chronic kidney disease [Unknown]

NARRATIVE: CASE EVENT DATE: 20220101
